FAERS Safety Report 9549328 (Version 4)
Quarter: 2014Q1

REPORT INFORMATION
  Report Type: Spontaneous
  Country: US (occurrence: US)
  Receive Date: 20130924
  Receipt Date: 20140114
  Transmission Date: 20141002
  Serious: No
  Sender: FDA-Public Use
  Company Number: US-PFIZER INC-2013272610

PATIENT
  Age: 48 Year
  Sex: Female
  Weight: 108.8 kg

DRUGS (2)
  1. NEURONTIN [Suspect]
     Indication: PAIN
     Dosage: 1200 MG (BY TAKING TWO TABLETS OF 600MG), 3X/DAY
     Route: 048
  2. NEURONTIN [Suspect]
     Dosage: 1200 MG(BY TAKING TWO TABLETS OF 600MG) , 3X/DAY
     Route: 048
     Dates: start: 2013

REACTIONS (4)
  - Off label use [Unknown]
  - Drug ineffective for unapproved indication [Unknown]
  - Hypovitaminosis [Unknown]
  - Drug tolerance [Unknown]
